FAERS Safety Report 10550084 (Version 2)
Quarter: 2014Q4

REPORT INFORMATION
  Report Type: Report from Study
  Country: MX (occurrence: MX)
  Receive Date: 20141028
  Receipt Date: 20141028
  Transmission Date: 20150529
  Serious: Yes (Other)
  Sender: FDA-Public Use
  Company Number: PHHY2012MX039225

PATIENT
  Age: 72 Year
  Sex: Female

DRUGS (3)
  1. CINEGIL [Concomitant]
     Indication: ARTHRALGIA
     Dosage: 1 DF, QD
     Route: 065
     Dates: start: 1990
  2. CO-DIOVAN [Suspect]
     Active Substance: HYDROCHLOROTHIAZIDE\VALSARTAN
     Indication: HYPERTENSION
     Dosage: 1 DF, QD
     Route: 048
  3. CO-DIOVAN [Suspect]
     Active Substance: HYDROCHLOROTHIAZIDE\VALSARTAN
     Dosage: 1 DF, UNK
     Route: 065

REACTIONS (4)
  - Overweight [Unknown]
  - Fatigue [Not Recovered/Not Resolved]
  - Meniscus injury [Unknown]
  - Dengue fever [Not Recovered/Not Resolved]

NARRATIVE: CASE EVENT DATE: 20141018
